FAERS Safety Report 6078001-X (Version None)
Quarter: 2009Q1

REPORT INFORMATION
  Report Type: 
  Country: None (occurrence: None)
  Receive Date: 20090213
  Receipt Date: 20090212
  Transmission Date: 20090719
  Serious: Yes (Death, Hospitalization)
  Sender: FDA-Public Use
  Company Number: US-ASTRAZENECA-2007UW09469

PATIENT
  Age: 11326 Day
  Sex: Male

DRUGS (7)
  1. SEROQUEL [Suspect]
     Indication: BIPOLAR DISORDER
     Route: 048
     Dates: start: 19970101, end: 20060807
  2. SEROQUEL [Suspect]
     Indication: DEPRESSION
     Route: 048
     Dates: start: 19970101, end: 20060807
  3. SEROQUEL [Suspect]
     Indication: SCHIZOPHRENIA
     Route: 048
     Dates: start: 19970101, end: 20060807
  4. DEPAKOTE [Concomitant]
     Dates: start: 19960101
  5. LOXITANE [Concomitant]
     Dates: start: 19960101
  6. ZOLOFT [Concomitant]
     Dates: start: 19960101
  7. PAXIL [Concomitant]
     Dates: start: 19970101

REACTIONS (7)
  - HALLUCINATION [None]
  - HYPOTENSION [None]
  - METABOLIC ACIDOSIS [None]
  - MOOD ALTERED [None]
  - PANCREATITIS ACUTE [None]
  - PARANOIA [None]
  - RENAL FAILURE ACUTE [None]
